FAERS Safety Report 8120638-8 (Version None)
Quarter: 2012Q1

REPORT INFORMATION
  Report Type: 
  Country: None (occurrence: None)
  Receive Date: 20120207
  Receipt Date: 20120131
  Transmission Date: 20120608
  Serious: Yes (Hospitalization)
  Sender: FDA-Public Use
  Company Number: US-ROCHE-1035910

PATIENT
  Sex: Male

DRUGS (6)
  1. REMERON [Concomitant]
  2. BYSTOLIC [Concomitant]
  3. VEMURAFENIB [Suspect]
     Indication: METASTATIC MALIGNANT MELANOMA
     Dosage: LAST DOSE PRIOR TO SAE ON 24 JAN 2012
     Route: 048
     Dates: start: 20120118
  4. OXYCONTIN [Concomitant]
     Dates: start: 20120126
  5. FERROUS SULFATE TAB [Concomitant]
  6. LASIX [Concomitant]

REACTIONS (2)
  - PAIN [None]
  - ANAEMIA [None]
